FAERS Safety Report 5678975-2 (Version None)
Quarter: 2008Q1

REPORT INFORMATION
  Report Type: 
  Country: None (occurrence: None)
  Receive Date: 20080325
  Receipt Date: 20080324
  Transmission Date: 20080703
  Serious: Yes (Other)
  Sender: FDA-Public Use
  Company Number: A0717065A

PATIENT
  Age: 40 Year
  Sex: Female
  Weight: 104 kg

DRUGS (2)
  1. ALLI [Suspect]
     Dates: start: 20070814, end: 20080318
  2. LUNESTA [Concomitant]

REACTIONS (3)
  - GALLBLADDER DISORDER [None]
  - NEPHROLITHIASIS [None]
  - PAIN [None]
